FAERS Safety Report 9555750 (Version 1)
Quarter: 2013Q3

REPORT INFORMATION
  Report Type: Spontaneous
  Country: US (occurrence: None)
  Receive Date: 20130724
  Receipt Date: 20130724
  Transmission Date: 20140515
  Serious: Yes (Other)
  Sender: FDA-Public Use
  Company Number: PHEH2013US005143

PATIENT
  Age: 42 Year
  Sex: Female
  Weight: 52.7 kg

DRUGS (14)
  1. GILENYA (FINGOLIMOD) CAPSULE, 0.5MG [Suspect]
     Indication: MULTIPLE SCLEROSIS
     Route: 048
     Dates: start: 20120217
  2. BACLOFEN [Concomitant]
  3. NTG [Concomitant]
  4. CARDIZEM [Concomitant]
  5. AMPYRA [Concomitant]
  6. CLINDAMYCIN (CLINDAMYCIN) [Concomitant]
  7. CLARITIN (LORATADINE) [Concomitant]
  8. NEURONTIN (GABAPENTIN) [Concomitant]
  9. RITALIN [Concomitant]
  10. PROTONIX [Concomitant]
  11. LEVOTHYROXINE [Concomitant]
  12. DIAZEPAM [Concomitant]
  13. SOMA (CARISOPRODOL) [Concomitant]
  14. ZOFRAN [Concomitant]

REACTIONS (1)
  - Herpes zoster [None]
